FAERS Safety Report 14838841 (Version 1)
Quarter: 2018Q2

REPORT INFORMATION
  Report Type: Spontaneous
  Country: US (occurrence: US)
  Receive Date: 20180502
  Receipt Date: 20180502
  Transmission Date: 20180711
  Serious: Yes (Death)
  Sender: FDA-Public Use
  Company Number: US-FRESENIUS KABI-FK201805033

PATIENT
  Age: 54 Year
  Sex: Male

DRUGS (3)
  1. FLUOROURACIL (MANUFACTURER UNKNOWN) [Suspect]
     Active Substance: FLUOROURACIL
     Indication: SQUAMOUS CELL CARCINOMA OF THE TONGUE
     Route: 065
  2. HYDROXYCARBAMIDE [Concomitant]
     Active Substance: HYDROXYUREA
     Indication: SQUAMOUS CELL CARCINOMA OF THE TONGUE
  3. PACLITAXEL. [Concomitant]
     Active Substance: PACLITAXEL
     Indication: SQUAMOUS CELL CARCINOMA OF THE TONGUE

REACTIONS (9)
  - Sepsis [Fatal]
  - Off label use [Unknown]
  - Skin exfoliation [Fatal]
  - Acute kidney injury [Fatal]
  - Haemodynamic instability [Fatal]
  - Product use in unapproved indication [Unknown]
  - Pancytopenia [Fatal]
  - Stenotrophomonas infection [Fatal]
  - Diarrhoea [Fatal]
